FAERS Safety Report 10036715 (Version 1)
Quarter: 2014Q1

REPORT INFORMATION
  Report Type: Spontaneous
  Country: IT (occurrence: IT)
  Receive Date: 20140326
  Receipt Date: 20140326
  Transmission Date: 20141002
  Serious: Yes (Hospitalization)
  Sender: FDA-Public Use
  Company Number: PHHY2014IT032698

PATIENT
  Age: 53 Year
  Sex: Female

DRUGS (3)
  1. LORAZEPAM [Suspect]
     Indication: DRUG ABUSE
     Dosage: 1 DF, ONCE/SINGLE
     Route: 048
     Dates: start: 20140310, end: 20140310
  2. CYMBALTA [Suspect]
     Indication: DRUG ABUSE
     Dosage: 1 DF, ONCE/SINGLE
     Route: 048
     Dates: start: 20140310, end: 20140310
  3. ATARAX [Suspect]
     Indication: DRUG ABUSE
     Dosage: 1 DF, ONCE/SINGLE
     Route: 048
     Dates: start: 20140310, end: 20140310

REACTIONS (3)
  - Bradykinesia [Recovering/Resolving]
  - Drug abuse [Recovering/Resolving]
  - Somnolence [Recovering/Resolving]
